FAERS Safety Report 4968074-7 (Version None)
Quarter: 2006Q2

REPORT INFORMATION
  Report Type: 
  Country: None (occurrence: None)
  Receive Date: 20060410
  Receipt Date: 20060329
  Transmission Date: 20061013
  Serious: Yes (Hospitalization)
  Sender: FDA-Public Use
  Company Number: US-ROCHE-442460

PATIENT
  Age: 61 Year
  Sex: Male

DRUGS (10)
  1. SAQUINAVIR [Suspect]
     Dosage: HARD-GEL CAPSULE - REPORTED AS CURRENT DOSE.
     Route: 048
     Dates: start: 20050501
  2. ATAZANAVIR [Suspect]
     Route: 048
     Dates: start: 20040608
  3. RITONAVIR [Suspect]
     Route: 048
     Dates: start: 20040608
  4. ZIAGEN [Suspect]
     Dosage: REPORTED AS A BID DOSE
     Route: 048
     Dates: start: 20040521
  5. LIPITOR [Concomitant]
     Dates: start: 20011015
  6. ACYCLOVIR [Concomitant]
     Dates: start: 20030915
  7. TIMOLOL MALEATE [Concomitant]
     Dosage: ADMINISTERED EVERY BEDTIME
     Route: 047
     Dates: start: 20050615
  8. IMODIUM [Concomitant]
  9. METAMUCIL [Concomitant]
  10. UNSPECIFIED DRUG [Concomitant]
     Dosage: REPORTED AS 'NASINEX'

REACTIONS (1)
  - MYOCARDIAL INFARCTION [None]
